FAERS Safety Report 6484052-3 (Version None)
Quarter: 2009Q4

REPORT INFORMATION
  Report Type: 
  Country: None (occurrence: None)
  Receive Date: 20091208
  Receipt Date: 20091208
  Transmission Date: 20100525
  Serious: Yes (Other)
  Sender: FDA-Public Use
  Company Number: None

PATIENT
  Age: 51 Year
  Sex: Female
  Weight: 79.8331 kg

DRUGS (1)
  1. SIMVASTATIN [Suspect]
     Indication: BLOOD CHOLESTEROL INCREASED
     Dosage: 20 MG. ONCE DAILY PO
     Route: 048
     Dates: start: 20070310, end: 20091119

REACTIONS (3)
  - DYSPHAGIA [None]
  - HYPOPHAGIA [None]
  - OESOPHAGEAL SPASM [None]
